FAERS Safety Report 19025209 (Version 1)
Quarter: 2021Q1

REPORT INFORMATION
  Report Type: Spontaneous
  Country: US (occurrence: US)
  Receive Date: 20210318
  Receipt Date: 20210318
  Transmission Date: 20210420
  Serious: Yes (Life-Threatening, Hospitalization, Other)
  Sender: FDA-Public Use
  Company Number: US-CIPLA LTD.-2021US01858

PATIENT

DRUGS (7)
  1. MACROBID [Suspect]
     Active Substance: NITROFURANTOIN\NITROFURANTOIN MONOHYDRATE
     Dosage: UNK
     Route: 064
  2. SERTRALINE [Suspect]
     Active Substance: SERTRALINE HYDROCHLORIDE
     Dosage: UNK
     Route: 064
  3. ESCITALOPRAM [Suspect]
     Active Substance: ESCITALOPRAM OXALATE
     Dosage: UNK
     Route: 064
  4. SODIUM CHLORIDE. [Suspect]
     Active Substance: SODIUM CHLORIDE
     Dosage: UNK
     Route: 064
  5. DINOPROSTONE. [Suspect]
     Active Substance: DINOPROSTONE
     Dosage: UNK
     Route: 064
  6. OXYTOCIN. [Suspect]
     Active Substance: OXYTOCIN
     Dosage: UNK
     Route: 064
  7. PRENATAL VITAMINS [MINERALS NOS;VITAMINS NOS] [Suspect]
     Active Substance: MINERALS\VITAMINS
     Dosage: UNK
     Route: 064

REACTIONS (8)
  - Cyanosis [Recovered/Resolved]
  - Neonatal behavioural syndrome [Recovered/Resolved]
  - Respiratory distress [Recovered/Resolved]
  - Respiratory depression [Recovered/Resolved]
  - Hypoglycaemia [Recovered/Resolved]
  - Hypoxia [Recovered/Resolved]
  - Motor dysfunction [Recovered/Resolved]
  - Foetal exposure during pregnancy [Recovered/Resolved]
